FAERS Safety Report 6240205-0 (Version None)
Quarter: 2009Q2

REPORT INFORMATION
  Report Type: 
  Country: None (occurrence: None)
  Receive Date: 20090623
  Receipt Date: 20080218
  Transmission Date: 20091009
  Serious: No
  Sender: FDA-Public Use
  Company Number: US-ASTRAZENECA-2008UW03337

PATIENT
  Age: 13 Year
  Sex: Female

DRUGS (1)
  1. PULMICORT FLEXHALER [Suspect]
     Route: 055
     Dates: start: 20080215

REACTIONS (3)
  - SWOLLEN TONGUE [None]
  - TONGUE BLISTERING [None]
  - TONGUE DISORDER [None]
